FAERS Safety Report 4557990-6 (Version None)
Quarter: 2005Q1

REPORT INFORMATION
  Report Type: 
  Country: None (occurrence: None)
  Receive Date: 20050121
  Receipt Date: 20040421
  Transmission Date: 20050727
  Serious: No
  Sender: FDA-Public Use
  Company Number: US-BRISTOL-MYERS SQUIBB COMPANY-12567145

PATIENT
  Age: 59 Year
  Sex: Male
  Weight: 112 kg

DRUGS (4)
  1. SERZONE [Suspect]
     Dosage: 200 MG THREE TIMES DAILY IN APR-01
     Route: 048
     Dates: start: 20000401, end: 20020601
  2. LOTREL [Concomitant]
  3. WELLBUTRIN [Concomitant]
  4. ZYPREXA [Concomitant]

REACTIONS (3)
  - ALANINE AMINOTRANSFERASE INCREASED [None]
  - ASPARTATE AMINOTRANSFERASE INCREASED [None]
  - HEPATIC STEATOSIS [None]
